FAERS Safety Report 4472896-9 (Version None)
Quarter: 2004Q4

REPORT INFORMATION
  Report Type: 
  Country: None (occurrence: None)
  Receive Date: 20041012
  Receipt Date: 20041012
  Transmission Date: 20050328
  Serious: Yes (Life-Threatening, Hospitalization)
  Sender: FDA-Public Use
  Company Number: None

PATIENT
  Sex: Male
  Weight: 73.4827 kg

DRUGS (2)
  1. CELEBREX [Suspect]
     Indication: INTESTINAL POLYP
     Dosage: 1 TAB BID
     Dates: start: 20031112, end: 20040905
  2. CELEBREX [Suspect]
     Indication: INTESTINAL POLYP
     Dosage: 1 TAB BID
     Dates: start: 20040905, end: 20040905

REACTIONS (2)
  - ACUTE CORONARY SYNDROME [None]
  - THROMBOCYTOPENIA [None]
